FAERS Safety Report 18370200 (Version 2)
Quarter: 2020Q4

REPORT INFORMATION
  Report Type: Spontaneous
  Country: JP (occurrence: JP)
  Receive Date: 20201012
  Receipt Date: 20201027
  Transmission Date: 20210114
  Serious: Yes (Hospitalization)
  Sender: FDA-Public Use
  Company Number: JP-SUN PHARMACEUTICAL INDUSTRIES LTD-2020R1-263712

PATIENT
  Age: 18 Year
  Sex: Female
  Weight: 52 kg

DRUGS (2)
  1. DUAC [Suspect]
     Active Substance: BENZOYL PEROXIDE\CLINDAMYCIN PHOSPHATE
     Indication: ACNE
     Dosage: 0.6 GRAM, QD
     Route: 062
     Dates: start: 20200925, end: 20201007
  2. FAROM [Concomitant]
     Active Substance: FAROPENEM SODIUM
     Indication: URTICARIA
     Dosage: UNK, TID
     Route: 048

REACTIONS (1)
  - Dermatitis contact [Recovered/Resolved]

NARRATIVE: CASE EVENT DATE: 20201005
